FAERS Safety Report 16164586 (Version 2)
Quarter: 2019Q2

REPORT INFORMATION
  Report Type: Spontaneous
  Country: DE (occurrence: DE)
  Receive Date: 20190405
  Receipt Date: 20190508
  Transmission Date: 20190711
  Serious: Yes (Death, Life-Threatening, Hospitalization)
  Sender: FDA-Public Use
  Company Number: DE-ALLERGAN-1914687US

PATIENT
  Sex: Male

DRUGS (1)
  1. PANZYTRAT (AMYLASE\LIPASE\PROTEASE) [Suspect]
     Active Substance: AMYLASE\LIPASE\PROTEASE
     Indication: PRODUCT USED FOR UNKNOWN INDICATION
     Dosage: 120000 UNITS, QD
     Route: 065

REACTIONS (6)
  - Intestinal gangrene [Fatal]
  - Peritonitis [Fatal]
  - Intestinal polyp [Recovering/Resolving]
  - Haematochezia [Recovering/Resolving]
  - Gastrointestinal inflammation [Fatal]
  - Multiple organ dysfunction syndrome [Fatal]
